FAERS Safety Report 5913116-5 (Version None)
Quarter: 2008Q4

REPORT INFORMATION
  Report Type: 
  Country: None (occurrence: None)
  Receive Date: 20081008
  Receipt Date: 20081008
  Transmission Date: 20090506
  Serious: Yes (Life-Threatening)
  Sender: FDA-Public Use
  Company Number: None

PATIENT
  Age: 61 Year
  Sex: Female
  Weight: 106.5953 kg

DRUGS (1)
  1. AMBIEN [Suspect]
     Indication: INSOMNIA
     Dosage: HS ORAL
     Route: 048
     Dates: start: 20080801

REACTIONS (3)
  - GLOSSODYNIA [None]
  - PRURITUS [None]
  - SWOLLEN TONGUE [None]
